FAERS Safety Report 5226369-6 (Version None)
Quarter: 2007Q1

REPORT INFORMATION
  Report Type: 
  Country: None (occurrence: None)
  Receive Date: 20070201
  Receipt Date: 20070112
  Transmission Date: 20070707
  Serious: Yes (Other)
  Sender: FDA-Public Use
  Company Number: US-JNJFOC-20070104738

PATIENT
  Age: 35 Year
  Sex: Female

DRUGS (1)
  1. TRAMADOL HYDROCHLORIDE AND ACETAMINOPHEN [Suspect]
     Indication: SUICIDE ATTEMPT
     Route: 065

REACTIONS (2)
  - OVERDOSE [None]
  - SUICIDAL IDEATION [None]
